FAERS Safety Report 7647654-4 (Version None)
Quarter: 2011Q3

REPORT INFORMATION
  Report Type: 
  Country: None (occurrence: None)
  Receive Date: 20110801
  Receipt Date: 20110801
  Transmission Date: 20111222
  Serious: Yes (Hospitalization)
  Sender: FDA-Public Use
  Company Number: None

PATIENT
  Age: 60 Year
  Sex: Female
  Weight: 96.1 kg

DRUGS (2)
  1. CARBAMAZEPINE [Suspect]
     Indication: BIPOLAR DISORDER
     Dosage: 600MG
     Route: 048
     Dates: start: 20110711, end: 20110720
  2. LAMOTRIGINE [Concomitant]
     Indication: CONVULSION
     Dosage: 25MG
     Route: 048
     Dates: start: 20110715, end: 20110722

REACTIONS (1)
  - TOXICITY TO VARIOUS AGENTS [None]
